FAERS Safety Report 6374800-5 (Version None)
Quarter: 2009Q3

REPORT INFORMATION
  Report Type: 
  Country: None (occurrence: None)
  Receive Date: 20090924
  Receipt Date: 20090915
  Transmission Date: 20100115
  Serious: No
  Sender: FDA-Public Use
  Company Number: US-B.I. PHARMACEUTICALS,INC./RIDGEFIELD-2009-BP-04203BP

PATIENT
  Sex: Female

DRUGS (5)
  1. SPIRIVA [Suspect]
     Indication: EMPHYSEMA
     Dosage: 18 MCG
     Route: 055
     Dates: start: 20090101
  2. SYNTHROID [Concomitant]
     Indication: THYROID DISORDER
  3. VITAMIN B-12 [Concomitant]
     Indication: IRON DEFICIENCY
  4. VIT D [Concomitant]
     Indication: PROPHYLAXIS
  5. ALBUTEROL [Concomitant]
     Indication: EMPHYSEMA

REACTIONS (1)
  - DEVICE INTERACTION [None]
